FAERS Safety Report 10488505 (Version 2)
Quarter: 2016Q2

REPORT INFORMATION
  Report Type: Report from Study
  Country: US (occurrence: US)
  Receive Date: 20141002
  Receipt Date: 20160627
  Transmission Date: 20160815
  Serious: Yes (Hospitalization, Other)
  Sender: FDA-Public Use
  Company Number: US-ROCHE-1468172

PATIENT
  Age: 18 Year
  Sex: Male
  Weight: 19.9 kg

DRUGS (48)
  1. SINEMET [Concomitant]
     Active Substance: CARBIDOPA\LEVODOPA
     Dosage: 8 MG IN MORNING; 6 MG IN NOON; 3 MG LATER IN DAY
     Route: 065
  2. PROTROPIN [Concomitant]
     Active Substance: SOMATREM
     Route: 058
  3. NASACORT [Concomitant]
     Active Substance: TRIAMCINOLONE ACETONIDE
  4. PULMICORT TURBUHALER [Concomitant]
     Active Substance: BUDESONIDE
  5. NUTROPIN AQ [Suspect]
     Active Substance: SOMATROPIN
     Route: 058
  6. SCOPOLAMINE [Concomitant]
     Active Substance: SCOPOLAMINE
     Indication: DROOLING
  7. NASACORT SPRAY [Concomitant]
  8. TAGAMET [Concomitant]
     Active Substance: CIMETIDINE
     Dosage: 2.5 CC
     Route: 065
  9. LORATADINE. [Concomitant]
     Active Substance: LORATADINE
     Route: 065
  10. ZANTAC [Concomitant]
     Active Substance: RANITIDINE HYDROCHLORIDE
     Dosage: 3.3 CC
     Route: 065
  11. LEVODOPA [Concomitant]
     Active Substance: LEVODOPA
     Dosage: 10/8/4
     Route: 065
  12. DIOCTO [Concomitant]
     Active Substance: DOCUSATE SODIUM
     Route: 058
  13. PROTROPIN [Concomitant]
     Active Substance: SOMATREM
     Route: 058
  14. PEDIASURE [Concomitant]
     Active Substance: VITAMINS
     Dosage: 36-38 OUNCES A DAY
     Route: 065
  15. LORATADINE. [Concomitant]
     Active Substance: LORATADINE
  16. ISOSOURCE [Concomitant]
     Route: 065
  17. NUTROPIN AQ [Suspect]
     Active Substance: SOMATROPIN
     Route: 058
     Dates: start: 199212
  18. NUTROPIN AQ [Suspect]
     Active Substance: SOMATROPIN
     Route: 058
  19. NUTROPIN AQ [Suspect]
     Active Substance: SOMATROPIN
     Route: 058
  20. LODOSYN [Concomitant]
     Active Substance: CARBIDOPA
     Route: 065
  21. DIOCTO [Concomitant]
     Active Substance: DOCUSATE SODIUM
     Route: 058
  22. OMEPRAZOLE. [Concomitant]
     Active Substance: OMEPRAZOLE
     Route: 065
  23. CLONAZEPAM. [Suspect]
     Active Substance: CLONAZEPAM
     Indication: HYPERREFLEXIA
     Dosage: 2 CC AM, 1.5 CC WITH LUNCH 2 CC PM
     Route: 065
  24. LODOSYN [Concomitant]
     Active Substance: CARBIDOPA
     Route: 065
  25. FOLATE [Concomitant]
     Active Substance: FOLATE SODIUM
  26. NUTROPIN AQ [Suspect]
     Active Substance: SOMATROPIN
     Indication: GROWTH HORMONE DEFICIENCY
     Route: 058
  27. POLY-VI-SOL [Concomitant]
  28. DIOCTO [Concomitant]
     Active Substance: DOCUSATE SODIUM
     Dosage: 7.5CC, 8 AND 8 1/2 MG
     Route: 058
  29. DOCUSATE [Concomitant]
     Active Substance: DOCUSATE
     Dosage: 8 CC
     Route: 065
  30. REGLAN [Concomitant]
     Active Substance: METOCLOPRAMIDE HYDROCHLORIDE
     Route: 065
  31. SINEMET [Concomitant]
     Active Substance: CARBIDOPA\LEVODOPA
     Dosage: 8MG NOON 8MG NIGHT 6 MG NONN 3MG LATER IN THE DAY, AM
     Route: 065
  32. NUTROPIN AQ [Suspect]
     Active Substance: SOMATROPIN
     Indication: DWARFISM
     Route: 058
  33. NUTROPIN AQ [Suspect]
     Active Substance: SOMATROPIN
     Route: 058
  34. NUTROPIN AQ [Suspect]
     Active Substance: SOMATROPIN
     Route: 058
  35. ALBUTEROL. [Concomitant]
     Active Substance: ALBUTEROL
     Dosage: PRN
     Route: 065
  36. PROTROPIN [Concomitant]
     Active Substance: SOMATREM
     Route: 058
  37. PROTROPIN [Concomitant]
     Active Substance: SOMATREM
     Route: 058
  38. PREVACID [Concomitant]
     Active Substance: LANSOPRAZOLE
     Dosage: 10 CC AM
     Route: 065
  39. PREVACID [Concomitant]
     Active Substance: LANSOPRAZOLE
     Dosage: 1.5 CC
     Route: 065
  40. ISOSOURCE [Concomitant]
     Route: 065
  41. CLONAZEPAM. [Suspect]
     Active Substance: CLONAZEPAM
     Indication: HYPERTONIA
     Dosage: 0.12MG/ML
     Route: 065
  42. LODOSYN [Concomitant]
     Active Substance: CARBIDOPA
     Route: 065
  43. CLARITIN [Concomitant]
     Active Substance: LORATADINE
  44. PROPULSID [Concomitant]
     Active Substance: CISAPRIDE
     Dosage: BEFORE MEALS
     Route: 065
  45. PROPULSID [Concomitant]
     Active Substance: CISAPRIDE
     Route: 065
  46. GLYCOPYRROLATE. [Concomitant]
     Active Substance: GLYCOPYRROLATE
  47. METOCLOPRAMIDE. [Concomitant]
     Active Substance: METOCLOPRAMIDE
     Dosage: 5 CC 30 MIN
     Route: 065
  48. SELEGILINE [Concomitant]
     Active Substance: SELEGILINE

REACTIONS (22)
  - Contusion [Unknown]
  - Rhinorrhoea [Unknown]
  - Scoliosis [Unknown]
  - Constipation [Unknown]
  - Respiratory muscle weakness [Unknown]
  - Hand fracture [Unknown]
  - Precocious puberty [Unknown]
  - Respiratory distress [Unknown]
  - Gingival hypertrophy [Unknown]
  - Sinus operation [Unknown]
  - Weight decreased [Unknown]
  - Salivary hypersecretion [Unknown]
  - Catheter site erythema [Unknown]
  - Decubitus ulcer [Recovered/Resolved]
  - Vomiting [Unknown]
  - Erythema [Unknown]
  - Vitamin D decreased [Unknown]
  - Insulin-like growth factor increased [Unknown]
  - Bone density decreased [Unknown]
  - Choking [Unknown]
  - Decubitus ulcer [Unknown]
  - Dyspnoea [Recovered/Resolved]

NARRATIVE: CASE EVENT DATE: 200906
